FAERS Safety Report 19804202 (Version 1)
Quarter: 2021Q3

REPORT INFORMATION
  Report Type: Spontaneous
  Country: US (occurrence: US)
  Receive Date: 20210908
  Receipt Date: 20210908
  Transmission Date: 20211014
  Serious: No
  Sender: FDA-Public Use
  Company Number: US-FARMAPROD-202107-1104

PATIENT
  Sex: Female

DRUGS (3)
  1. REFRESH CELLUVISC [Concomitant]
     Active Substance: CARBOXYMETHYLCELLULOSE SODIUM
     Dosage: 1 % DROPER GEL
  2. EYLEA [Concomitant]
     Active Substance: AFLIBERCEPT
     Dosage: 2 MG/0.05 ML SYRINGE
  3. OXERVATE [Suspect]
     Active Substance: CENEGERMIN-BKBJ
     Indication: NEUROTROPHIC KERATOPATHY
     Route: 047
     Dates: start: 20210629

REACTIONS (3)
  - Product administration error [Unknown]
  - Product use issue [Unknown]
  - Eye pain [Unknown]
